FAERS Safety Report 4358518-6 (Version None)
Quarter: 2004Q2

REPORT INFORMATION
  Report Type: 
  Country: None (occurrence: None)
  Receive Date: 20040514
  Receipt Date: 20040505
  Transmission Date: 20050107
  Serious: Yes (Other)
  Sender: FDA-Public Use
  Company Number: GB-GLAXOSMITHKLINE-B0331986A

PATIENT
  Age: 27 Year
  Sex: Male
  Weight: 87 kg

DRUGS (2)
  1. ZYBAN [Suspect]
     Dosage: 1TAB PER DAY
     Route: 048
     Dates: start: 20040401, end: 20040408
  2. BECLOMETHASONE DIPROPIONATE [Concomitant]
     Dosage: 200MCG TWICE PER DAY

REACTIONS (2)
  - LOSS OF CONSCIOUSNESS [None]
  - ROAD TRAFFIC ACCIDENT [None]
